FAERS Safety Report 20124756 (Version 1)
Quarter: 2021Q4

REPORT INFORMATION
  Report Type: Spontaneous
  Country: US (occurrence: None)
  Receive Date: 20211126
  Receipt Date: 20211126
  Transmission Date: 20220303
  Serious: Yes (Hospitalization)
  Sender: FDA-Public Use
  Company Number: None

PATIENT
  Age: 54 Year
  Sex: Female

DRUGS (13)
  1. MYCOPHENOLIC ACID [Suspect]
     Active Substance: MYCOPHENOLIC ACID
     Indication: Renal transplant
     Dosage: FREQUENCY : EVERY 12 HOURS;?
     Route: 048
     Dates: start: 20150804
  2. TACROLIMUS [Suspect]
     Active Substance: TACROLIMUS
     Indication: Renal transplant
     Dosage: FREQUENCY : EVERY 12 HOURS;?
     Route: 048
     Dates: start: 20180807
  3. ACYCLOVIR [Concomitant]
  4. ATENOLOL [Concomitant]
     Active Substance: ATENOLOL
  5. ATORVASTATIN [Concomitant]
     Active Substance: ATORVASTATIN
  6. BETAMETHASONE DIPROPIONATE [Concomitant]
     Active Substance: BETAMETHASONE DIPROPIONATE
  7. CALCITRIOL [Concomitant]
  8. METRONIDAZOL [Concomitant]
  9. OXYCODONE [Concomitant]
     Active Substance: OXYCODONE
  10. PREDNISONE [Concomitant]
     Active Substance: PREDNISONE
  11. PROBIOTIC COMPLEX [Concomitant]
  12. TRETINOIN [Concomitant]
     Active Substance: TRETINOIN
  13. VITAMIN D3 [Concomitant]
     Active Substance: CHOLECALCIFEROL

REACTIONS (3)
  - Arterial occlusive disease [None]
  - Chest pain [None]
  - Nausea [None]

NARRATIVE: CASE EVENT DATE: 20210101
